FAERS Safety Report 7480390-6 (Version None)
Quarter: 2011Q2

REPORT INFORMATION
  Report Type: 
  Country: None (occurrence: None)
  Receive Date: 20110504
  Receipt Date: 20110420
  Transmission Date: 20111010
  Serious: Yes (Death)
  Sender: FDA-Public Use
  Company Number: 031650

PATIENT

DRUGS (1)
  1. CIMZIA [Suspect]
     Indication: RHEUMATOID ARTHRITIS
     Dosage: 4 DOSES, SUBCUTANEOUS
     Route: 058
     Dates: start: 20100622, end: 20100805

REACTIONS (1)
  - CARDIAC FAILURE CONGESTIVE [None]
